FAERS Safety Report 4270238-5 (Version None)
Quarter: 2004Q1

REPORT INFORMATION
  Report Type: 
  Country: None (occurrence: None)
  Receive Date: 20040113
  Receipt Date: 20040113
  Transmission Date: 20041129
  Serious: Yes (Hospitalization)
  Sender: FDA-Public Use
  Company Number: None

PATIENT
  Age: 51 Year
  Sex: Male

DRUGS (5)
  1. GLYBURIDE [Suspect]
     Indication: DIABETES MELLITUS NON-INSULIN-DEPENDENT
     Dosage: 2.5 MG Q AM
     Dates: start: 19990401
  2. HYDROCHLOROTHIAZIDE [Concomitant]
  3. QUETIAPINE [Concomitant]
  4. FOSINOPRIL SODIUM [Concomitant]
  5. CITALOPRAM [Concomitant]

REACTIONS (2)
  - HYPERHIDROSIS [None]
  - LETHARGY [None]
